FAERS Safety Report 5306820-3 (Version None)
Quarter: 2007Q2

REPORT INFORMATION
  Report Type: 
  Country: None (occurrence: None)
  Receive Date: 20070420
  Receipt Date: 20070420
  Transmission Date: 20071010
  Serious: Yes (Hospitalization)
  Sender: FDA-Public Use
  Company Number: None

PATIENT
  Age: 52 Year
  Sex: Male
  Weight: 84 kg

DRUGS (2)
  1. METFORMIN [Suspect]
     Indication: DIABETES MELLITUS NON-INSULIN-DEPENDENT
     Dosage: METFORMIN 500MG BREAKFAST
  2. GLYBURIDE [Suspect]
     Dosage: GLYBURIDE 5MG BREAKFAST

REACTIONS (2)
  - HYPOGLYCAEMIA [None]
  - INCORRECT DOSE ADMINISTERED [None]
